FAERS Safety Report 9430659 (Version 2)
Quarter: 2013Q4

REPORT INFORMATION
  Report Type: Spontaneous
  Country: GB (occurrence: GB)
  Receive Date: 20130730
  Receipt Date: 20131111
  Transmission Date: 20140711
  Serious: Yes (Disabling)
  Sender: FDA-Public Use
  Company Number: GB-B.I. PHARMACEUTICALS,INC./RIDGEFIELD-2013-UK-01467UK

PATIENT
  Age: 66 Year
  Sex: 0
  Weight: 121 kg

DRUGS (9)
  1. PRADAXA [Suspect]
     Indication: CEREBROVASCULAR ACCIDENT PROPHYLAXIS
     Dosage: 300 MG
     Route: 048
     Dates: start: 20130222, end: 20130712
  2. ALLOPURINOL [Concomitant]
     Dosage: 400 MG
     Dates: start: 20130710
  3. ASPIRIN [Concomitant]
     Dosage: 75 MG
     Dates: start: 20130712
  4. ATENOLOL [Concomitant]
     Dosage: 50 MG
     Dates: start: 20130710
  5. BECLOMETASONE [Concomitant]
     Dosage: 4 ANZ
     Route: 045
     Dates: start: 20110506
  6. BENDROFLUMETHIAZIDE [Concomitant]
     Dosage: 2.5 MG
     Dates: start: 20130612
  7. CETIRIZINE HYDROCHLORIDE [Concomitant]
     Dosage: 10 MG
     Dates: start: 20130710
  8. OLOPATADINE [Concomitant]
     Indication: SEASONAL ALLERGY
     Dosage: 2 ANZ
     Route: 031
     Dates: start: 20130506
  9. RANITIDINE [Concomitant]
     Indication: PROPHYLAXIS
     Dosage: 600 MG
     Dates: start: 20130712

REACTIONS (3)
  - Arthralgia [Not Recovered/Not Resolved]
  - Pain [Not Recovered/Not Resolved]
  - Synovitis [Not Recovered/Not Resolved]
